FAERS Safety Report 13869631 (Version 2)
Quarter: 2017Q4

REPORT INFORMATION
  Report Type: Spontaneous
  Country: US (occurrence: US)
  Receive Date: 20170815
  Receipt Date: 20171114
  Transmission Date: 20180320
  Serious: Yes (Death)
  Sender: FDA-Public Use
  Company Number: US-LEADIANT BIOSCIENCES INC-2017STPI000595

PATIENT
  Sex: Male

DRUGS (4)
  1. ACYCLOVIR                          /00587301/ [Concomitant]
     Active Substance: ACYCLOVIR
  2. SULFAMETHOXAZOLE AND TRIMETHOPRIM [Concomitant]
     Active Substance: SULFAMETHOXAZOLE\TRIMETHOPRIM
  3. BUDESONIDE. [Concomitant]
     Active Substance: BUDESONIDE
  4. ADAGEN [Suspect]
     Active Substance: PEGADEMASE BOVINE
     Indication: COMBINED IMMUNODEFICIENCY
     Dosage: 1600 IU, QW
     Route: 030
     Dates: start: 20140816

REACTIONS (1)
  - Death [Fatal]
